FAERS Safety Report 5414390-4 (Version None)
Quarter: 2007Q3

REPORT INFORMATION
  Report Type: 
  Country: None (occurrence: None)
  Receive Date: 20070814
  Receipt Date: 20070803
  Transmission Date: 20080115
  Serious: Yes (Hospitalization)
  Sender: FDA-Public Use
  Company Number: US-SHR-US-2007-027477

PATIENT
  Age: 65 Year
  Sex: Female
  Weight: 52 kg

DRUGS (3)
  1. BETASERON [Suspect]
     Indication: SECONDARY PROGRESSIVE MULTIPLE SCLEROSIS
     Dosage: 2 MIU, EVERY 2D
     Route: 058
     Dates: start: 20070721, end: 20070801
  2. TYLENOL (CAPLET) [Concomitant]
  3. DIGOXIN [Concomitant]
     Indication: SUPRAVENTRICULAR TACHYCARDIA
     Dosage: .25 MG, 1X/DAY

REACTIONS (5)
  - DIPLOPIA [None]
  - GAIT DISTURBANCE [None]
  - HEADACHE [None]
  - MALAISE [None]
  - MUSCLE SPASMS [None]
